FAERS Safety Report 7753633-9 (Version None)
Quarter: 2011Q3

REPORT INFORMATION
  Report Type: 
  Country: None (occurrence: None)
  Receive Date: 20110915
  Receipt Date: 20110908
  Transmission Date: 20111222
  Serious: Yes (Hospitalization)
  Sender: FDA-Public Use
  Company Number: CZ-GLAXOSMITHKLINE-B0746764A

PATIENT
  Sex: Female

DRUGS (7)
  1. TORECAN [Concomitant]
     Dates: start: 20110810, end: 20110810
  2. STUDY MEDICATION [Suspect]
     Indication: CHRONIC LYMPHOCYTIC LEUKAEMIA
     Dosage: 1000MG PER DAY
     Route: 042
     Dates: start: 20110810
  3. MILURIT [Concomitant]
     Dates: start: 20110809
  4. SOLU-MEDROL [Concomitant]
     Dates: start: 20110810, end: 20110810
  5. CHLORAMBUCIL [Suspect]
     Indication: CHRONIC LYMPHOCYTIC LEUKAEMIA
     Dosage: 39MG CYCLIC
     Route: 048
     Dates: start: 20110810
  6. PARALEN [Concomitant]
     Dates: start: 20110810, end: 20110810
  7. DITHIADEN [Concomitant]
     Dates: start: 20110810, end: 20110810

REACTIONS (2)
  - PYREXIA [None]
  - URINARY TRACT INFECTION [None]
